FAERS Safety Report 6557109-6 (Version None)
Quarter: 2010Q1

REPORT INFORMATION
  Report Type: 
  Country: None (occurrence: None)
  Receive Date: 20100128
  Receipt Date: 20100118
  Transmission Date: 20100710
  Serious: Yes (Other)
  Sender: FDA-Public Use
  Company Number: JP-AMGEN-US382777

PATIENT
  Sex: Female
  Weight: 92 kg

DRUGS (15)
  1. ENBREL [Suspect]
     Indication: RHEUMATOID ARTHRITIS
     Route: 058
     Dates: start: 20090427, end: 20091020
  2. ENBREL [Suspect]
     Route: 058
     Dates: start: 20091102, end: 20091102
  3. ENBREL [Suspect]
     Route: 058
     Dates: start: 20091204
  4. RHEUMATREX [Concomitant]
     Route: 065
     Dates: start: 20081201, end: 20090201
  5. RHEUMATREX [Concomitant]
     Dates: start: 20090201
  6. ISONIAZID [Concomitant]
     Indication: ANTIBIOTIC PROPHYLAXIS
     Route: 048
     Dates: start: 20090401
  7. CONIEL [Concomitant]
     Indication: HYPERTENSION
     Route: 048
  8. PYDOXAL [Concomitant]
     Route: 065
  9. ALOSITOL [Concomitant]
     Indication: GOUT
     Route: 048
  10. LOXONIN [Concomitant]
     Indication: RHEUMATOID ARTHRITIS
     Route: 048
  11. KELNAC [Concomitant]
     Indication: GASTRITIS
     Route: 048
  12. FOLIC ACID [Concomitant]
     Route: 065
  13. MILTAX [Concomitant]
     Route: 065
  14. SULFASALAZINE [Concomitant]
     Indication: RHEUMATOID ARTHRITIS
     Dosage: 1000 MG; UNSPECIFIED FREQUENCY
     Route: 048
     Dates: start: 20050101
  15. DIOVAN [Concomitant]
     Indication: HYPERTENSION
     Route: 048

REACTIONS (3)
  - HEPATIC FUNCTION ABNORMAL [None]
  - HEPATITIS B ANTIGEN POSITIVE [None]
  - KNEE ARTHROPLASTY [None]
